FAERS Safety Report 5585624-0 (Version None)
Quarter: 2008Q1

REPORT INFORMATION
  Report Type: 
  Country: None (occurrence: None)
  Receive Date: 20080109
  Receipt Date: 20071217
  Transmission Date: 20080703
  Serious: Yes (Hospitalization, Other)
  Sender: FDA-Public Use
  Company Number: US-MERCK-0712USA07957

PATIENT
  Age: 63 Year
  Sex: Male

DRUGS (16)
  1. DECADRON [Suspect]
     Indication: MULTIPLE MYELOMA
     Route: 048
     Dates: start: 20060901
  2. REVLIMID [Suspect]
     Indication: MULTIPLE MYELOMA
     Route: 048
     Dates: start: 20060901, end: 20070701
  3. REVLIMID [Suspect]
     Route: 048
     Dates: start: 20070801
  4. MIRTAZAPINE [Concomitant]
     Route: 065
  5. RISPERIDONE [Concomitant]
     Route: 065
  6. SUCRALFATE [Concomitant]
     Route: 065
  7. POTASSIUM CHLORIDE [Concomitant]
     Route: 065
  8. WARFARIN [Concomitant]
     Route: 065
  9. PROTONIX [Concomitant]
     Route: 065
  10. LORATADINE [Concomitant]
     Route: 065
  11. MAGNESIUM GLUCONATE [Concomitant]
     Route: 048
  12. TAMSULOSIN HYDROCHLORIDE [Concomitant]
     Route: 065
  13. SENNA [Concomitant]
     Route: 065
  14. COLACE [Concomitant]
     Route: 048
  15. DIGOXIN [Concomitant]
     Route: 048
  16. FENTANYL [Concomitant]
     Route: 061

REACTIONS (7)
  - ASTHENIA [None]
  - DEEP VEIN THROMBOSIS [None]
  - INCOHERENT [None]
  - MENTAL STATUS CHANGES [None]
  - PULMONARY EMBOLISM [None]
  - SPEECH DISORDER [None]
  - VISUAL DISTURBANCE [None]
